FAERS Safety Report 10430365 (Version 1)
Quarter: 2014Q3

REPORT INFORMATION
  Report Type: Spontaneous
  Country: GB (occurrence: GB)
  Receive Date: 20140904
  Receipt Date: 20140904
  Transmission Date: 20150326
  Serious: Yes (Hospitalization, Other)
  Sender: FDA-Public Use
  Company Number: GB-ACTAVIS-2014-18956

PATIENT
  Age: 91 Year
  Sex: Female

DRUGS (6)
  1. CITALOPRAM [Concomitant]
     Active Substance: CITALOPRAM HYDROBROMIDE
     Indication: PRODUCT USED FOR UNKNOWN INDICATION
     Dosage: 20 MG, QAM
     Route: 065
  2. PERINDOPRIL (UNKNOWN) [Suspect]
     Active Substance: PERINDOPRIL
     Indication: LEFT VENTRICULAR FAILURE
     Dosage: 4 MG, DAILY
     Route: 048
     Dates: end: 20120409
  3. SPIRONOLACTONE (UNKNOWN) [Suspect]
     Active Substance: SPIRONOLACTONE
     Indication: LEFT VENTRICULAR FAILURE
     Dosage: 12.5 MG, DAILY
     Route: 048
     Dates: end: 20120409
  4. HALOPERIDOL. [Concomitant]
     Active Substance: HALOPERIDOL
     Indication: PRODUCT USED FOR UNKNOWN INDICATION
     Dosage: 500 ?G, QPM
     Route: 065
  5. VITAMIN B12 [Concomitant]
     Active Substance: CYANOCOBALAMIN
     Indication: PRODUCT USED FOR UNKNOWN INDICATION
     Dosage: 1 MG, 3/1MONTH
     Route: 030
  6. ASASANTIN [Concomitant]
     Active Substance: ASPIRIN\DIPYRIDAMOLE
     Indication: PRODUCT USED FOR UNKNOWN INDICATION
     Dosage: 1 DF, BID
     Route: 065

REACTIONS (5)
  - Dizziness [Unknown]
  - Renal failure acute [Recovered/Resolved]
  - Confusional state [Unknown]
  - Medication error [Unknown]
  - Asthenia [Unknown]

NARRATIVE: CASE EVENT DATE: 201204
